FAERS Safety Report 6615123-6 (Version None)
Quarter: 2010Q1

REPORT INFORMATION
  Report Type: 
  Country: None (occurrence: None)
  Receive Date: 20100305
  Receipt Date: 20100222
  Transmission Date: 20100710
  Serious: Yes (Other)
  Sender: FDA-Public Use
  Company Number: BE-BRISTOL-MYERS SQUIBB COMPANY-14987341

PATIENT
  Age: 80 Year
  Sex: Female

DRUGS (2)
  1. ARIPIPRAZOLE [Suspect]
  2. VENLAFAXINE HCL [Suspect]

REACTIONS (3)
  - DELIRIUM [None]
  - HYPERTENSIVE CRISIS [None]
  - TACHYCARDIA [None]
